FAERS Safety Report 18086818 (Version 1)
Quarter: 2020Q3

REPORT INFORMATION
  Report Type: Spontaneous
  Country: US (occurrence: US)
  Receive Date: 20200729
  Receipt Date: 20200729
  Transmission Date: 20201103
  Serious: No
  Sender: FDA-Public Use
  Company Number: None

PATIENT
  Age: 59 Year
  Sex: Female
  Weight: 67.5 kg

DRUGS (1)
  1. BAHAMA BO OCEAN FRESH HAND SANITIZER [Suspect]
     Active Substance: ALCOHOL
     Indication: INFECTION PROPHYLAXIS
     Dosage: ?          QUANTITY:16 OUNCE(S);?
     Route: 061
     Dates: start: 20200501, end: 20200728

REACTIONS (7)
  - Eye pain [None]
  - Photophobia [None]
  - Abdominal pain upper [None]
  - Hypoaesthesia [None]
  - Visual impairment [None]
  - Diarrhoea [None]
  - Vision blurred [None]

NARRATIVE: CASE EVENT DATE: 20200726
